FAERS Safety Report 10579599 (Version 1)
Quarter: 2014Q4

REPORT INFORMATION
  Report Type: Spontaneous
  Country: US (occurrence: US)
  Receive Date: 20141112
  Receipt Date: 20141112
  Transmission Date: 20150529
  Serious: Yes (Other)
  Sender: FDA-Public Use
  Company Number: US-BAYER-2014-165451

PATIENT
  Age: 69 Year
  Sex: Female
  Weight: 37 kg

DRUGS (3)
  1. APIXABAN [Suspect]
     Active Substance: APIXABAN
     Indication: ATRIAL FIBRILLATION
     Dosage: 5 MG, BID
     Route: 048
     Dates: start: 201409
  2. PANTOPRAZOLE [Concomitant]
     Active Substance: PANTOPRAZOLE SODIUM
     Indication: GASTROOESOPHAGEAL REFLUX DISEASE
     Dosage: 40 MG, QD
  3. BAYER ASPIRIN REGIMEN REGULAR 325 MG STRENGTH [Suspect]
     Active Substance: ASPIRIN

REACTIONS (3)
  - Gastritis [Recovering/Resolving]
  - Drug intolerance [None]
  - Pain [None]

NARRATIVE: CASE EVENT DATE: 201410
